FAERS Safety Report 8358585-9 (Version None)
Quarter: 2012Q2

REPORT INFORMATION
  Report Type: 
  Country: None (occurrence: None)
  Receive Date: 20120514
  Receipt Date: 20120502
  Transmission Date: 20120825
  Serious: Yes (Hospitalization)
  Sender: FDA-Public Use
  Company Number: US-BAYER-2012-046334

PATIENT
  Age: 28 Year
  Sex: Female
  Weight: 41.7 kg

DRUGS (5)
  1. YASMIN [Suspect]
  2. PROTONIX [Concomitant]
  3. FERROUS SULFATE TAB [Concomitant]
  4. LORTAB [Concomitant]
  5. MEDROL [Concomitant]

REACTIONS (3)
  - PULMONARY EMBOLISM [None]
  - PULMONARY INFARCTION [None]
  - PELVIC VENOUS THROMBOSIS [None]
